FAERS Safety Report 5169645-8 (Version None)
Quarter: 2006Q4

REPORT INFORMATION
  Report Type: 
  Country: None (occurrence: None)
  Receive Date: 20060918
  Receipt Date: 20060705
  Transmission Date: 20070319
  Serious: Yes (Hospitalization)
  Sender: FDA-Public Use
  Company Number: US-JNJFOC-20060103918

PATIENT
  Age: 34 Year
  Sex: Female
  Weight: 95.2554 kg

DRUGS (2)
  1. ORTHO EVRA [Suspect]
     Indication: MENSTRUATION IRREGULAR
     Dosage: 1 DOSE(S), 3 IN 4 WEEK; TRANSDERMAL
     Route: 062
     Dates: start: 20050601, end: 20050718
  2. MECLIZINE [Concomitant]

REACTIONS (4)
  - CEREBRAL INFARCTION [None]
  - DIARRHOEA [None]
  - NAUSEA [None]
  - VOMITING [None]
